FAERS Safety Report 6414140-9 (Version None)
Quarter: 2009Q4

REPORT INFORMATION
  Report Type: 
  Country: None (occurrence: None)
  Receive Date: 20091026
  Receipt Date: 20091023
  Transmission Date: 20100525
  Serious: Yes (Hospitalization, Other)
  Sender: FDA-Public Use
  Company Number: JP-B.I. PHARMACEUTICALS,INC./RIDGEFIELD-2009-BP-11995NB

PATIENT
  Age: 88 Year

DRUGS (8)
  1. MICARDIS [Suspect]
     Route: 048
  2. MUCOSERUM [Concomitant]
     Route: 048
  3. MEVALOTIN [Concomitant]
     Route: 048
  4. ALLOZYM [Concomitant]
     Route: 048
  5. TRANSAMIN [Concomitant]
     Route: 048
  6. HOKUNALIN [Concomitant]
     Route: 065
  7. ADOAIR [Concomitant]
     Route: 055
  8. KALIMATE [Concomitant]
     Route: 048

REACTIONS (2)
  - HYPERKALAEMIA [None]
  - LARGE INTESTINE CARCINOMA [None]
